FAERS Safety Report 9890683 (Version 1)
Quarter: 2014Q1

REPORT INFORMATION
  Report Type: Spontaneous
  Country: US (occurrence: None)
  Receive Date: 20140210
  Receipt Date: 20140210
  Transmission Date: 20141002
  Serious: Yes (Other)
  Sender: FDA-Public Use
  Company Number: None

PATIENT
  Age: 43 Year
  Sex: Female

DRUGS (1)
  1. HUMIRA 40 MG ABBVIE [Suspect]
     Indication: PSORIASIS
     Dosage: 40 MG  EVERY 2 WEEKS  SQ
     Route: 058
     Dates: start: 20131031

REACTIONS (4)
  - Feeling abnormal [None]
  - Amnesia [None]
  - Blood pressure increased [None]
  - Fatigue [None]
